FAERS Safety Report 16056508 (Version 1)
Quarter: 2019Q2

REPORT INFORMATION
  Report Type: Spontaneous
  Country: US (occurrence: US)
  Receive Date: 20190309
  Receipt Date: 20190309
  Transmission Date: 20190711
  Serious: Yes (Disabling, Other)
  Sender: FDA-Public Use
  Company Number: None

PATIENT
  Age: 28 Year
  Sex: Male
  Weight: 103.5 kg

DRUGS (1)
  1. DILANTIN (GENERIC) [Suspect]
     Active Substance: PHENYTOIN

REACTIONS (4)
  - Product substitution issue [None]
  - Brain injury [None]
  - Disability [None]
  - Generalised tonic-clonic seizure [None]

NARRATIVE: CASE EVENT DATE: 20190309
